FAERS Safety Report 24209835 (Version 1)
Quarter: 2024Q3

REPORT INFORMATION
  Report Type: Spontaneous
  Country: US (occurrence: US)
  Receive Date: 20240814
  Receipt Date: 20240814
  Transmission Date: 20241017
  Serious: No
  Sender: CSL BEHRING
  Company Number: US-BEH-2024177168

PATIENT
  Age: 34 Year
  Sex: Male

DRUGS (1)
  1. HEMGENIX [Suspect]
     Active Substance: ETRANACOGENE DEZAPARVOVEC
     Dosage: UNK
     Route: 065
     Dates: start: 20240731

REACTIONS (1)
  - Influenza like illness [Unknown]
